FAERS Safety Report 7528592-4 (Version None)
Quarter: 2011Q2

REPORT INFORMATION
  Report Type: 
  Country: None (occurrence: None)
  Receive Date: 20110607
  Receipt Date: 20040806
  Transmission Date: 20111010
  Serious: Yes (Other)
  Sender: FDA-Public Use
  Company Number: PHFR2004GB01460

PATIENT
  Sex: Female

DRUGS (1)
  1. CLOZARIL [Suspect]
     Indication: SCHIZOPHRENIA
     Dates: start: 20040119

REACTIONS (3)
  - NEUTROPENIA [None]
  - DIARRHOEA HAEMORRHAGIC [None]
  - DIARRHOEA INFECTIOUS [None]
